FAERS Safety Report 8618453-1 (Version None)
Quarter: 2012Q3

REPORT INFORMATION
  Report Type: 
  Country: None (occurrence: None)
  Receive Date: 20120824
  Receipt Date: 20120821
  Transmission Date: 20120928
  Serious: Yes (Other)
  Sender: FDA-Public Use
  Company Number: US-009507513-1208USA001903

PATIENT

DRUGS (3)
  1. METFORMIN HCL [Concomitant]
  2. JANUVIA [Suspect]
     Indication: TYPE 2 DIABETES MELLITUS
     Dosage: 100 MG, BID
     Route: 048
  3. JANUVIA [Suspect]
     Dosage: 50 MG, QD
     Route: 048

REACTIONS (2)
  - OVERDOSE [None]
  - RENAL FAILURE [None]
